FAERS Safety Report 25542047 (Version 5)
Quarter: 2025Q4

REPORT INFORMATION
  Report Type: Spontaneous
  Country: US (occurrence: US)
  Receive Date: 20250711
  Receipt Date: 20251201
  Transmission Date: 20260117
  Serious: Yes (Hospitalization, Other)
  Sender: NOVO NORDISK
  Company Number: US-NOVOPROD-1475149

PATIENT
  Age: 72 Year
  Sex: Female

DRUGS (3)
  1. OZEMPIC [Suspect]
     Active Substance: SEMAGLUTIDE
     Indication: Type 2 diabetes mellitus
     Dosage: UNK
  2. OZEMPIC [Suspect]
     Active Substance: SEMAGLUTIDE
     Dosage: 1 MG
  3. OZEMPIC [Suspect]
     Active Substance: SEMAGLUTIDE
     Dosage: 1 MG, QW
     Route: 058
     Dates: start: 20240101

REACTIONS (17)
  - Hernia [Not Recovered/Not Resolved]
  - Muscle spasms [Recovered/Resolved]
  - Loss of consciousness [Recovered/Resolved]
  - Cholelithiasis [Not Recovered/Not Resolved]
  - Macular oedema [Not Recovered/Not Resolved]
  - Pancreatic mass [Not Recovered/Not Resolved]
  - Pulmonary mass [Not Recovered/Not Resolved]
  - Benign neoplasm of thyroid gland [Not Recovered/Not Resolved]
  - Benign neoplasm of adrenal gland [Not Recovered/Not Resolved]
  - Skin laxity [Not Recovered/Not Resolved]
  - Blood pressure decreased [Recovered/Resolved]
  - Ill-defined disorder [Not Recovered/Not Resolved]
  - Asthenia [Recovered/Resolved]
  - Nausea [Recovered/Resolved]
  - Weight decreased [Not Recovered/Not Resolved]
  - Fatigue [Not Recovered/Not Resolved]
  - Upper-airway cough syndrome [Not Recovered/Not Resolved]

NARRATIVE: CASE EVENT DATE: 20240101
